FAERS Safety Report 14612323 (Version 1)
Quarter: 2018Q1

REPORT INFORMATION
  Report Type: Spontaneous
  Country: US (occurrence: US)
  Receive Date: 20180307
  Receipt Date: 20180307
  Transmission Date: 20180509
  Serious: Yes (Disabling)
  Sender: FDA-Public Use
  Company Number: None

PATIENT
  Age: 55 Year
  Sex: Male
  Weight: 69.75 kg

DRUGS (1)
  1. TRAMADOL. [Suspect]
     Active Substance: TRAMADOL
     Indication: BACK PAIN
     Dosage: ?          QUANTITY:1 TABLET(S);?
     Dates: start: 20170909, end: 20170930

REACTIONS (6)
  - Nausea [None]
  - Confusional state [None]
  - Visual brightness [None]
  - Ataxia [None]
  - Tinnitus [None]
  - Pain [None]

NARRATIVE: CASE EVENT DATE: 20170915
